FAERS Safety Report 6676598-X (Version None)
Quarter: 2010Q2

REPORT INFORMATION
  Report Type: 
  Country: None (occurrence: None)
  Receive Date: 20100412
  Receipt Date: 20100319
  Transmission Date: 20101027
  Serious: Yes (Hospitalization)
  Sender: FDA-Public Use
  Company Number: PHHY2010IE08052

PATIENT
  Sex: Male

DRUGS (3)
  1. CLOZARIL [Suspect]
     Indication: SCHIZOPHRENIA
     Dosage: 550 MG, QD
     Dates: start: 20080711
  2. FLURAZEPAM [Suspect]
     Dosage: 15 MG,NOCTE
  3. SENOKOT [Concomitant]
     Dosage: 10 MLS PRN

REACTIONS (3)
  - BLOOD GLUCOSE INCREASED [None]
  - INTENTIONAL OVERDOSE [None]
  - TACHYCARDIA [None]
